FAERS Safety Report 13716839 (Version 2)
Quarter: 2017Q4

REPORT INFORMATION
  Report Type: Spontaneous
  Country: US (occurrence: US)
  Receive Date: 20170705
  Receipt Date: 20171023
  Transmission Date: 20180320
  Serious: No
  Sender: FDA-Public Use
  Company Number: US-LEO PHARMA-303597

PATIENT
  Sex: Male

DRUGS (1)
  1. DAIVOBET [Suspect]
     Active Substance: BETAMETHASONE DIPROPIONATE\CALCIPOTRIENE
     Indication: PSORIASIS
     Route: 061
     Dates: start: 201704

REACTIONS (4)
  - Incorrect drug administration duration [Unknown]
  - Burning sensation [Recovered/Resolved]
  - Feeling cold [Recovered/Resolved]
  - Product quality issue [Unknown]
